FAERS Safety Report 5339246-7 (Version None)
Quarter: 2007Q2

REPORT INFORMATION
  Report Type: 
  Country: None (occurrence: None)
  Receive Date: 20070329
  Receipt Date: 20061129
  Transmission Date: 20071010
  Serious: Yes (Disabling)
  Sender: FDA-Public Use
  Company Number: A03200607221

PATIENT
  Age: 39 Year
  Sex: Female

DRUGS (1)
  1. AMBIEN CR [Suspect]
     Dosage: 12.5 MG HS - ORAL
     Route: 048
     Dates: start: 20060101, end: 20061208

REACTIONS (5)
  - ANXIETY [None]
  - DECREASED APPETITE [None]
  - DEPRESSION [None]
  - TREMOR [None]
  - WEIGHT DECREASED [None]
